FAERS Safety Report 16112545 (Version 1)
Quarter: 2019Q1

REPORT INFORMATION
  Report Type: Spontaneous
  Country: US (occurrence: US)
  Receive Date: 20190325
  Receipt Date: 20190325
  Transmission Date: 20190418
  Serious: No
  Sender: FDA-Public Use
  Company Number: US-PFIZER INC-2019118504

PATIENT
  Sex: Male

DRUGS (1)
  1. EFFEXOR XR [Suspect]
     Active Substance: VENLAFAXINE HYDROCHLORIDE
     Dosage: 450 MG (THREE 150 MG PILLS)

REACTIONS (4)
  - Product physical issue [Unknown]
  - Accidental overdose [Unknown]
  - Expired product administered [Unknown]
  - Feeling jittery [Unknown]
